FAERS Safety Report 8503042-X (Version None)
Quarter: 2012Q3

REPORT INFORMATION
  Report Type: 
  Country: None (occurrence: None)
  Receive Date: 20120711
  Receipt Date: 20120702
  Transmission Date: 20120928
  Serious: Yes (Hospitalization, Other)
  Sender: FDA-Public Use
  Company Number: US-ELI_LILLY_AND_COMPANY-US201202004344

PATIENT
  Sex: Female

DRUGS (14)
  1. ROPINIROLE [Concomitant]
  2. CYTOMEL [Concomitant]
  3. FORTEO [Suspect]
     Indication: OSTEOPOROSIS
     Dosage: 20 UG, QD
     Route: 065
     Dates: start: 20120115, end: 20120220
  4. FORTEO [Suspect]
     Dosage: 20 UG, QD
     Route: 065
     Dates: start: 20120115, end: 20120220
  5. SENNA-MINT WAF [Concomitant]
  6. MULTIVITAMINS, OTHER COMBINATIONS [Concomitant]
  7. LACTOBACILLUS BULGARICUS [Concomitant]
  8. PRILOSEC [Concomitant]
  9. SYNTHROID [Concomitant]
  10. VITAMIN B-12 [Concomitant]
  11. LACTOBACILLUS ACIDOPHILUS [Concomitant]
  12. SINEMET [Concomitant]
  13. FORTEO [Suspect]
     Dosage: 20 UG, QD
     Route: 065
     Dates: start: 20120115, end: 20120220
  14. DOCUSATE [Concomitant]

REACTIONS (10)
  - MENTAL IMPAIRMENT [None]
  - SPINAL COMPRESSION FRACTURE [None]
  - DRUG DOSE OMISSION [None]
  - MALAISE [None]
  - DYSKINESIA [None]
  - PYREXIA [None]
  - OSTEOMYELITIS [None]
  - MYALGIA [None]
  - MEMORY IMPAIRMENT [None]
  - PAIN IN EXTREMITY [None]
